FAERS Safety Report 25214648 (Version 2)
Quarter: 2025Q2

REPORT INFORMATION
  Report Type: Spontaneous
  Country: JP (occurrence: JP)
  Receive Date: 20250418
  Receipt Date: 20250604
  Transmission Date: 20250716
  Serious: Yes (Death, Hospitalization, Other)
  Sender: OTSUKA
  Company Number: JP-MMM-Otsuka-4IRU3FO6

PATIENT
  Age: 57 Year
  Sex: Male
  Weight: 67.3 kg

DRUGS (2)
  1. BUSULFEX [Suspect]
     Active Substance: BUSULFAN
     Indication: Allogenic stem cell transplantation
     Dosage: 3.2 MG/KG/DAY, 2 DAYS
     Route: 042
     Dates: start: 2022, end: 2022
  2. BUSULFEX [Suspect]
     Active Substance: BUSULFAN
     Indication: Premedication

REACTIONS (3)
  - Thrombotic microangiopathy [Fatal]
  - Acute respiratory failure [Recovering/Resolving]
  - Lung disorder [Recovering/Resolving]

NARRATIVE: CASE EVENT DATE: 20230101
